FAERS Safety Report 7503780-1 (Version None)
Quarter: 2011Q2

REPORT INFORMATION
  Report Type: 
  Country: None (occurrence: None)
  Receive Date: 20110524
  Receipt Date: 20110524
  Transmission Date: 20111010
  Serious: Yes (Life-Threatening, Hospitalization)
  Sender: FDA-Public Use
  Company Number: None

PATIENT
  Age: 44 Year
  Sex: Female
  Weight: 77.1115 kg

DRUGS (4)
  1. ZOLOFT [Concomitant]
  2. AMBIEN [Concomitant]
  3. NUVARING [Suspect]
     Indication: CONTRACEPTION
     Dosage: MONTHLY
     Dates: start: 20100301, end: 20101031
  4. CRESTOR [Concomitant]

REACTIONS (2)
  - PULMONARY EMBOLISM [None]
  - DEEP VEIN THROMBOSIS [None]
